FAERS Safety Report 7322544-5 (Version None)
Quarter: 2011Q1

REPORT INFORMATION
  Report Type: 
  Country: None (occurrence: None)
  Receive Date: 20110215
  Receipt Date: 20110203
  Transmission Date: 20110831
  Serious: Yes (Hospitalization)
  Sender: FDA-Public Use
  Company Number: 026825

PATIENT
  Age: 75 Year
  Sex: Male

DRUGS (1)
  1. KEPPRA [Suspect]
     Dosage: 500 MG BID
     Dates: start: 20090901

REACTIONS (1)
  - YELLOW SKIN [None]
